FAERS Safety Report 8793666 (Version 2)
Quarter: 2015Q2

REPORT INFORMATION
  Report Type: Report from Study
  Country: US (occurrence: US)
  Receive Date: 20120918
  Receipt Date: 20150505
  Transmission Date: 20150821
  Serious: Yes (Death)
  Sender: FDA-Public Use
  Company Number: US-ROCHE-1129443

PATIENT
  Sex: Female
  Weight: 81 kg

DRUGS (30)
  1. AVASTIN [Suspect]
     Active Substance: BEVACIZUMAB
     Indication: BREAST CANCER FEMALE
     Dosage: DOSE: 15MG/KG
     Route: 042
     Dates: start: 20081008
  2. XELODA [Concomitant]
     Active Substance: CAPECITABINE
     Route: 065
  3. CIMETIDINE [Concomitant]
     Active Substance: CIMETIDINE
     Route: 042
  4. REGLAN [Concomitant]
     Active Substance: METOCLOPRAMIDE HYDROCHLORIDE
     Route: 042
  5. CELEBREX [Concomitant]
     Active Substance: CELECOXIB
  6. ALOXI [Concomitant]
     Active Substance: PALONOSETRON HYDROCHLORIDE
     Route: 042
  7. ACTIVASE [Concomitant]
     Active Substance: ALTEPLASE
     Route: 065
  8. NEUROTIN (UNK INGREDIENTS) [Concomitant]
  9. CYTOXAN [Concomitant]
     Active Substance: CYCLOPHOSPHAMIDE
     Route: 042
  10. ATIVAN [Concomitant]
     Active Substance: LORAZEPAM
     Route: 042
  11. TAXOTERE [Concomitant]
     Active Substance: DOCETAXEL
     Route: 042
  12. FENTANYL. [Concomitant]
     Active Substance: FENTANYL
     Route: 065
  13. DOXIL [Concomitant]
     Active Substance: DOXORUBICIN HYDROCHLORIDE
     Route: 042
  14. DECADRON [Concomitant]
     Active Substance: DEXAMETHASONE
     Route: 042
  15. ALOXI [Concomitant]
     Active Substance: PALONOSETRON HYDROCHLORIDE
     Route: 042
  16. ARANESP [Concomitant]
     Active Substance: DARBEPOETIN ALFA
     Route: 065
  17. TAXOL [Concomitant]
     Active Substance: PACLITAXEL
     Route: 042
     Dates: start: 200803
  18. TAXOTERE [Concomitant]
     Active Substance: DOCETAXEL
     Route: 042
  19. HEPARIN [Concomitant]
     Active Substance: HEPARIN SODIUM
  20. ADRIAMYCIN [Concomitant]
     Active Substance: DOXORUBICIN HYDROCHLORIDE
     Route: 042
  21. ZOMETA [Concomitant]
     Active Substance: ZOLEDRONIC ACID
     Route: 065
  22. NEULASTA [Concomitant]
     Active Substance: PEGFILGRASTIM
     Route: 058
  23. MORPHINE [Concomitant]
     Active Substance: MORPHINE
     Route: 065
  24. TAXOTERE [Concomitant]
     Active Substance: DOCETAXEL
     Route: 042
  25. DECADRON [Concomitant]
     Active Substance: DEXAMETHASONE
     Route: 042
  26. SOLU-MEDROL [Concomitant]
     Active Substance: METHYLPREDNISOLONE SODIUM SUCCINATE
  27. GEMCITABINE [Concomitant]
     Active Substance: GEMCITABINE\GEMCITABINE HYDROCHLORIDE
     Route: 065
  28. ROXANOL [Concomitant]
     Active Substance: MORPHINE SULFATE
  29. TAXOL [Concomitant]
     Active Substance: PACLITAXEL
     Route: 042
  30. BENADRYL [Concomitant]
     Active Substance: DIPHENHYDRAMINE HYDROCHLORIDE
     Route: 042

REACTIONS (12)
  - Vomiting [Unknown]
  - Fatigue [Unknown]
  - Cough [Unknown]
  - Bone disorder [Unknown]
  - Palmar-plantar erythrodysaesthesia syndrome [Unknown]
  - Oedema peripheral [Unknown]
  - Back pain [Unknown]
  - Dysphagia [Unknown]
  - Pyrexia [Unknown]
  - Abdominal pain [Unknown]
  - Death [Fatal]
  - Bone pain [Unknown]
